FAERS Safety Report 6843399-9 (Version None)
Quarter: 2010Q3

REPORT INFORMATION
  Report Type: 
  Country: None (occurrence: None)
  Receive Date: 20100715
  Receipt Date: 20100630
  Transmission Date: 20110219
  Serious: Yes (Other)
  Sender: FDA-Public Use
  Company Number: US-BAYER-200941467NA

PATIENT
  Age: 26 Year
  Sex: Female
  Weight: 68 kg

DRUGS (13)
  1. YAZ [Suspect]
     Indication: ORAL CONTRACEPTION
     Route: 048
     Dates: start: 20080301, end: 20080901
  2. YASMIN [Suspect]
     Indication: PRODUCT USED FOR UNKNOWN INDICATION
  3. MIRENA [Suspect]
     Indication: PRODUCT USED FOR UNKNOWN INDICATION
     Route: 015
  4. LAMICTAL [Concomitant]
     Dates: start: 20060701
  5. WELLBUTRIN XL [Concomitant]
  6. TRAZODONE HYDROCHLORIDE [Concomitant]
     Dates: start: 20070801, end: 20090801
  7. NAVANE [Concomitant]
  8. PRENATAL VITAMINS [Concomitant]
     Dates: start: 20060401
  9. EFFEXOR XR [Concomitant]
     Dosage: 03-NOV-2005
     Route: 048
  10. RANITIDINE HCL [Concomitant]
     Dosage: 14-DEC-2004
     Route: 048
  11. MYCOLOG [Concomitant]
     Dosage: 11100000-0.1 U/GM-% CREA. 14-DEC-2004
     Route: 065
  12. MICROGESTIN 1.5/30 [Concomitant]
     Dosage: 1.5-30 MG
     Route: 065
  13. ORTHO-NOVUM [Concomitant]
     Dosage: 1/35
     Route: 065

REACTIONS (11)
  - ABDOMINAL PAIN UPPER [None]
  - ABDOMINAL TENDERNESS [None]
  - BILIARY DYSKINESIA [None]
  - CONSTIPATION [None]
  - DEPRESSION [None]
  - GALLBLADDER DISORDER [None]
  - GASTROINTESTINAL INJURY [None]
  - NAUSEA [None]
  - PAIN [None]
  - SUICIDAL IDEATION [None]
  - WEIGHT DECREASED [None]
